FAERS Safety Report 5057712-9 (Version None)
Quarter: 2006Q3

REPORT INFORMATION
  Report Type: 
  Country: None (occurrence: None)
  Receive Date: 20060721
  Receipt Date: 20060120
  Transmission Date: 20061208
  Serious: No
  Sender: FDA-Public Use
  Company Number: US-GLAXOSMITHKLINE-A0590283A

PATIENT
  Age: 56 Year
  Sex: Female

DRUGS (7)
  1. AVANDIA [Suspect]
     Route: 048
     Dates: start: 20050419, end: 20050801
  2. ALLEGRA [Concomitant]
  3. HYDROXYZINE [Concomitant]
  4. ATENOLOL [Concomitant]
  5. OMEPRAZOLE [Concomitant]
  6. FUROSEMIDE [Concomitant]
  7. SYNTHROID [Concomitant]

REACTIONS (1)
  - DIARRHOEA [None]
